FAERS Safety Report 9729786 (Version 1)
Quarter: 2013Q4

REPORT INFORMATION
  Report Type: Spontaneous
  Country: DE (occurrence: None)
  Receive Date: 20131203
  Receipt Date: 20131203
  Transmission Date: 20140711
  Serious: Yes (Hospitalization)
  Sender: FDA-Public Use
  Company Number: AUR-APL-2013-09926

PATIENT
  Age: 20 Year
  Sex: Male

DRUGS (2)
  1. MIRTAZAPINE [Suspect]
     Indication: PRODUCT USED FOR UNKNOWN INDICATION
     Route: 048
     Dates: start: 20120801, end: 20130207
  2. L THYROXINE [Suspect]
     Indication: HYPOTHYROIDISM
     Route: 048
     Dates: start: 20120801

REACTIONS (6)
  - Weight increased [None]
  - Hyperlipidaemia [None]
  - Blood triglycerides increased [None]
  - Blood cholesterol increased [None]
  - High density lipoprotein decreased [None]
  - Low density lipoprotein increased [None]
